FAERS Safety Report 8267482-9 (Version None)
Quarter: 2012Q2

REPORT INFORMATION
  Report Type: 
  Country: None (occurrence: None)
  Receive Date: 20120409
  Receipt Date: 20120405
  Transmission Date: 20120825
  Serious: Yes (Death, Hospitalization, Other)
  Sender: FDA-Public Use
  Company Number: PHEH2008US04229

PATIENT
  Sex: Male
  Weight: 102.4 kg

DRUGS (12)
  1. CALCIUM WITH VITAMIN D [Concomitant]
  2. ZOMETA [Suspect]
     Indication: BONE DISORDER
     Route: 042
  3. BIAXIN [Concomitant]
     Dosage: 500 MG, UNK
  4. AREDIA [Suspect]
     Indication: MULTIPLE MYELOMA
     Route: 042
     Dates: start: 19970701
  5. SPIRONOLACTONE [Concomitant]
  6. CHLORHEXIDINE GLUCONATE [Concomitant]
  7. BENEMID [Concomitant]
  8. CELEBREX [Concomitant]
  9. AUGMENTIN '125' [Concomitant]
  10. OXYCODONE HCL [Concomitant]
     Dosage: 10 MG, BID
     Route: 048
  11. CHEMOTHERAPEUTICS [Concomitant]
  12. MAGNESIUM HYDROXIDE TAB [Concomitant]

REACTIONS (86)
  - FEMUR FRACTURE [None]
  - GAIT DISTURBANCE [None]
  - OSTEOARTHRITIS [None]
  - OEDEMA PERIPHERAL [None]
  - BACK PAIN [None]
  - PROSTATE INFECTION [None]
  - NEOPLASM MALIGNANT [None]
  - OSTEOPENIA [None]
  - INTERVERTEBRAL DISC DEGENERATION [None]
  - BONE DISORDER [None]
  - RESPIRATORY DISTRESS [None]
  - CALCULUS BLADDER [None]
  - OSTEOMYELITIS [None]
  - BLOOD CHOLESTEROL INCREASED [None]
  - HIP FRACTURE [None]
  - TACHYCARDIA [None]
  - HAEMANGIOMA [None]
  - DEATH [None]
  - LUMBAR VERTEBRAL FRACTURE [None]
  - ATELECTASIS [None]
  - GOUT [None]
  - ACTINIC KERATOSIS [None]
  - METASTASES TO BONE [None]
  - PAIN IN JAW [None]
  - CARDIOMEGALY [None]
  - HAEMORRHOIDS [None]
  - HYPERGLYCAEMIA [None]
  - DIVERTICULUM INTESTINAL [None]
  - HAND FRACTURE [None]
  - OSTEONECROSIS OF JAW [None]
  - DIAPHRAGMATIC PARALYSIS [None]
  - GINGIVAL BLEEDING [None]
  - DERMATITIS [None]
  - BASAL CELL CARCINOMA [None]
  - ANAEMIA [None]
  - CONSTIPATION [None]
  - OSTEOLYSIS [None]
  - SPINAL OSTEOARTHRITIS [None]
  - SWELLING [None]
  - BRONCHIECTASIS [None]
  - DIABETES MELLITUS [None]
  - COMPRESSION FRACTURE [None]
  - OSTEOPOROSIS [None]
  - PLEURAL EFFUSION [None]
  - ABSCESS [None]
  - HERPES ZOSTER [None]
  - PAIN IN EXTREMITY [None]
  - TENDERNESS [None]
  - PELVIC PAIN [None]
  - PNEUMONIA [None]
  - LUNG CONSOLIDATION [None]
  - MENINGOCELE [None]
  - MALNUTRITION [None]
  - URINARY TRACT INFECTION [None]
  - THROMBOSIS [None]
  - PAIN [None]
  - INTERVERTEBRAL DISC PROTRUSION [None]
  - BONE LESION [None]
  - BONE PAIN [None]
  - PYELOCALIECTASIS [None]
  - SCOLIOSIS [None]
  - NEUROPATHY PERIPHERAL [None]
  - ARTHRALGIA [None]
  - ILEUS [None]
  - RESPIRATORY FAILURE [None]
  - RESPIRATORY ACIDOSIS [None]
  - DYSPNOEA [None]
  - VERTEBRAL FORAMINAL STENOSIS [None]
  - LUMBAR SPINAL STENOSIS [None]
  - TOOTHACHE [None]
  - IMPAIRED HEALING [None]
  - LEUKOPENIA [None]
  - ARTHROPATHY [None]
  - ROTATOR CUFF SYNDROME [None]
  - SPONDYLOLISTHESIS [None]
  - FAILURE TO THRIVE [None]
  - INFECTION [None]
  - SCAR [None]
  - NEOPLASM PROGRESSION [None]
  - AMNESIA [None]
  - PATHOLOGICAL FRACTURE [None]
  - PROTEIN URINE PRESENT [None]
  - CHONDROPATHY [None]
  - ABDOMINAL PAIN [None]
  - FALL [None]
  - BENIGN PROSTATIC HYPERPLASIA [None]
